FAERS Safety Report 4514523-8 (Version None)
Quarter: 2004Q3

REPORT INFORMATION
  Report Type: 
  Country: None (occurrence: None)
  Receive Date: 20040928
  Receipt Date: 20040707
  Transmission Date: 20050211
  Serious: No
  Sender: FDA-Public Use
  Company Number: 04P-163-0266115-00

PATIENT
  Age: 78 Year
  Sex: Male
  Weight: 77.1115 kg

DRUGS (12)
  1. HUMIRA [Suspect]
     Indication: RHEUMATOID ARTHRITIS
     Dosage: 40 M G, 1 IN 2 WK, SUBCUTANEOUS
     Route: 058
     Dates: start: 20040601, end: 20040701
  2. METHOTREXATE [Concomitant]
  3. PREDNISONE [Concomitant]
  4. ACETYLSALICYLIC ACID [Concomitant]
  5. CETIRIZINE HCL [Concomitant]
  6. FOLIC ACID [Concomitant]
  7. METOPROLOL [Concomitant]
  8. FINASTERIDE [Concomitant]
  9. ERGOCALCIFEROL [Concomitant]
  10. CALCIUM [Concomitant]
  11. ALENDRONATE SODIUM [Concomitant]
  12. QUINAPRIL HYDROCHLORIDE [Concomitant]

REACTIONS (1)
  - VIRAL INFECTION [None]
